FAERS Safety Report 21779644 (Version 1)
Quarter: 2022Q4

REPORT INFORMATION
  Report Type: Spontaneous
  Country: JP (occurrence: JP)
  Receive Date: 20221226
  Receipt Date: 20221226
  Transmission Date: 20230113
  Serious: Yes (Hospitalization, Other)
  Sender: FDA-Public Use
  Company Number: JP-DSJP-DSJ-2022-146431

PATIENT
  Age: 73 Year
  Sex: Female
  Weight: 54 kg

DRUGS (6)
  1. PRASUGREL HYDROCHLORIDE [Suspect]
     Active Substance: PRASUGREL HYDROCHLORIDE
     Indication: Myocardial ischaemia
     Dosage: UNK
     Route: 065
     Dates: end: 2020
  2. ASPIRIN [Suspect]
     Active Substance: ASPIRIN
     Dosage: UNK
     Route: 048
  3. ASPIRIN [Suspect]
     Active Substance: ASPIRIN
     Dosage: UNK
     Route: 048
  4. ACETAMINOPHEN [Concomitant]
     Active Substance: ACETAMINOPHEN
     Indication: Analgesic therapy
     Dosage: UNK
     Route: 065
  5. UNSPECIFIED INGREDIENT [Concomitant]
     Active Substance: UNSPECIFIED INGREDIENT
     Indication: Analgesic therapy
     Dosage: UNK
     Route: 065
  6. MEROPENEM [Concomitant]
     Active Substance: MEROPENEM
     Indication: Septic shock
     Dosage: UNK
     Route: 065
     Dates: start: 2020

REACTIONS (8)
  - Renal pseudoaneurysm [Recovered/Resolved]
  - Calculus urinary [Unknown]
  - Hydronephrosis [Unknown]
  - Pyelonephritis [Recovered/Resolved]
  - Emphysematous pyelonephritis [Recovered/Resolved]
  - Septic shock [Recovering/Resolving]
  - Duodenal obstruction [Unknown]
  - Upper gastrointestinal haemorrhage [Unknown]

NARRATIVE: CASE EVENT DATE: 20200101
